FAERS Safety Report 22614967 (Version 6)
Quarter: 2024Q1

REPORT INFORMATION
  Report Type: Spontaneous
  Country: US (occurrence: US)
  Receive Date: 20230619
  Receipt Date: 20240312
  Transmission Date: 20240410
  Serious: Yes (Other)
  Sender: FDA-Public Use
  Company Number: US-BAYER-2023A084397

PATIENT
  Age: 33 Year
  Sex: Male

DRUGS (9)
  1. KOVALTRY [Suspect]
     Active Substance: ANTIHEMOPHILIC FACTOR, HUMAN RECOMBINANT
     Indication: Factor VIII deficiency
     Dosage: 1800 IU, TIW
     Route: 042
     Dates: start: 202212
  2. KOVALTRY [Suspect]
     Active Substance: ANTIHEMOPHILIC FACTOR, HUMAN RECOMBINANT
     Indication: Factor VIII deficiency
     Dosage: 1 DF, TO TREAT RIGHT ELBOW JOINT BLEED
  3. KOVALTRY [Suspect]
     Active Substance: ANTIHEMOPHILIC FACTOR, HUMAN RECOMBINANT
     Indication: Factor VIII deficiency
     Dosage: 1 DF, TO TREAT LEFT JOINT ELBOW BLEED
  4. KOVALTRY [Suspect]
     Active Substance: ANTIHEMOPHILIC FACTOR, HUMAN RECOMBINANT
     Indication: Factor VIII deficiency
     Dosage: 1 DF, TO TREAT RIGHT ELBOW JOINT BLEED
     Route: 042
     Dates: start: 202310
  5. KOVALTRY [Suspect]
     Active Substance: ANTIHEMOPHILIC FACTOR, HUMAN RECOMBINANT
     Indication: Factor VIII deficiency
     Dosage: 1 DF, TO TREAT LEFT JOINT ELBOW BLEED
     Route: 042
     Dates: start: 202310
  6. KOVALTRY [Suspect]
     Active Substance: ANTIHEMOPHILIC FACTOR, HUMAN RECOMBINANT
     Indication: Factor VIII deficiency
     Dosage: 1 DF, ONCE
     Route: 042
     Dates: start: 20240215
  7. KOVALTRY [Suspect]
     Active Substance: ANTIHEMOPHILIC FACTOR, HUMAN RECOMBINANT
     Indication: Factor VIII deficiency
     Dosage: 1 DF
     Route: 042
     Dates: start: 20240216
  8. KOVALTRY [Suspect]
     Active Substance: ANTIHEMOPHILIC FACTOR, HUMAN RECOMBINANT
     Indication: Factor VIII deficiency
     Dosage: 1 DF
     Route: 042
     Dates: start: 20240227
  9. KOVALTRY [Suspect]
     Active Substance: ANTIHEMOPHILIC FACTOR, HUMAN RECOMBINANT
     Indication: Factor VIII deficiency
     Dosage: 1 DF
     Route: 042
     Dates: start: 20240228

REACTIONS (7)
  - Haemorrhage [Recovered/Resolved]
  - Haemorrhage [Recovered/Resolved]
  - Haemarthrosis [Recovered/Resolved]
  - Haemarthrosis [Recovered/Resolved]
  - Haemorrhage [None]
  - Haemorrhage [None]
  - Haemorrhage [None]

NARRATIVE: CASE EVENT DATE: 20230605
